FAERS Safety Report 23566442 (Version 1)
Quarter: 2024Q1

REPORT INFORMATION
  Report Type: Spontaneous
  Country: US (occurrence: US)
  Receive Date: 20240226
  Receipt Date: 20240226
  Transmission Date: 20240410
  Serious: No
  Sender: FDA-Public Use
  Company Number: US-AMNEAL PHARMACEUTICALS-2023-AMRX-00198

PATIENT
  Age: 68 Year
  Sex: Female
  Weight: 150 kg

DRUGS (4)
  1. RYTARY [Suspect]
     Active Substance: CARBIDOPA\LEVODOPA
     Indication: Parkinson^s disease
     Dosage: 48.75/195 MILLIGRAM, 3 /DAY
     Route: 048
     Dates: start: 20221226
  2. RYTARY [Suspect]
     Active Substance: CARBIDOPA\LEVODOPA
     Dosage: 2 CAPSULES, 4 /DAY
     Dates: start: 20230101
  3. GABAPENTIN [Concomitant]
     Active Substance: GABAPENTIN
     Indication: Feeling of relaxation
     Dosage: 300 MILLIGRAM, DAILY
     Route: 065
  4. ESCITALOPRAM [Concomitant]
     Active Substance: ESCITALOPRAM OXALATE
     Indication: Anxiety
     Dosage: 20 MILLIGRAM, DAILY
     Route: 065

REACTIONS (4)
  - Arthralgia [Not Recovered/Not Resolved]
  - Neck pain [Not Recovered/Not Resolved]
  - Dysgraphia [Not Recovered/Not Resolved]
  - Dry mouth [Not Recovered/Not Resolved]

NARRATIVE: CASE EVENT DATE: 20221226
